FAERS Safety Report 5284590-5 (Version None)
Quarter: 2007Q1

REPORT INFORMATION
  Report Type: 
  Country: None (occurrence: None)
  Receive Date: 20061229
  Receipt Date: 20060726
  Transmission Date: 20070707
  Serious: Yes (Life-Threatening, Hospitalization)
  Sender: FDA-Public Use
  Company Number: USA/96/00536/LEX

PATIENT
  Age: 28 Year
  Sex: Female

DRUGS (7)
  1. CLOZARIL [Suspect]
     Indication: SCHIZOAFFECTIVE DISORDER
     Dosage: SEE IMAGE
     Route: 048
     Dates: start: 19890101, end: 19950501
  2. CLOZARIL [Suspect]
     Indication: SCHIZOAFFECTIVE DISORDER
     Dosage: SEE IMAGE
     Route: 048
     Dates: start: 19950501, end: 19950815
  3. CLOZARIL [Suspect]
     Indication: SCHIZOAFFECTIVE DISORDER
     Dosage: SEE IMAGE
     Route: 048
     Dates: start: 19950920, end: 19951212
  4. CLOZARIL [Suspect]
     Indication: SCHIZOAFFECTIVE DISORDER
     Dosage: SEE IMAGE
     Route: 048
     Dates: start: 19951213, end: 19960304
  5. CLOZARIL [Suspect]
     Indication: SCHIZOAFFECTIVE DISORDER
     Dosage: SEE IMAGE
     Route: 048
     Dates: start: 19950816, end: 19960919
  6. ATIVAN [Concomitant]
  7. DEPAKOTE [Concomitant]

REACTIONS (8)
  - ASPARTATE AMINOTRANSFERASE INCREASED [None]
  - BLOOD ALKALINE PHOSPHATASE INCREASED [None]
  - BLOOD CREATINE PHOSPHOKINASE INCREASED [None]
  - LEUKOCYTOSIS [None]
  - LIFE SUPPORT [None]
  - MUSCULAR WEAKNESS [None]
  - NEUROLEPTIC MALIGNANT SYNDROME [None]
  - RHABDOMYOLYSIS [None]
